FAERS Safety Report 7168252-5 (Version None)
Quarter: 2010Q4

REPORT INFORMATION
  Report Type: 
  Country: None (occurrence: None)
  Receive Date: 20101216
  Receipt Date: 20101209
  Transmission Date: 20110411
  Serious: Yes (Other)
  Sender: FDA-Public Use
  Company Number: JP-ABBOTT-10P-087-0676359-00

PATIENT
  Sex: Female
  Weight: 55 kg

DRUGS (6)
  1. KLARICID [Suspect]
     Indication: ATYPICAL MYCOBACTERIAL INFECTION
     Route: 048
     Dates: start: 20081001
  2. KLARICID [Interacting]
     Dates: start: 20081001
  3. RIFABUTIN [Interacting]
     Indication: ATYPICAL MYCOBACTERIAL INFECTION
     Route: 048
     Dates: start: 20081001, end: 20090117
  4. RIFABUTIN [Interacting]
     Dates: start: 20081001
  5. ISONIAZID [Concomitant]
     Indication: MYCOBACTERIUM AVIUM COMPLEX INFECTION
     Dates: start: 20050501
  6. RIFAMPICIN [Concomitant]
     Indication: MYCOBACTERIUM AVIUM COMPLEX INFECTION
     Dates: start: 20050501

REACTIONS (2)
  - DRUG INTERACTION [None]
  - UVEITIS [None]
